FAERS Safety Report 23169396 (Version 1)
Quarter: 2023Q4

REPORT INFORMATION
  Report Type: Spontaneous
  Country: DE (occurrence: DE)
  Receive Date: 20231110
  Receipt Date: 20231110
  Transmission Date: 20240109
  Serious: Yes (Other)
  Sender: FDA-Public Use
  Company Number: DE-ABBVIE-5487335

PATIENT
  Age: 29 Year
  Sex: Female

DRUGS (6)
  1. ADALIMUMAB [Suspect]
     Active Substance: ADALIMUMAB\ISOPROPYL ALCOHOL
     Indication: Crohn^s disease
     Route: 058
  2. RINVOQ [Concomitant]
     Active Substance: UPADACITINIB
     Indication: Crohn^s disease
     Dates: start: 202304
  3. RINVOQ [Concomitant]
     Active Substance: UPADACITINIB
     Indication: Crohn^s disease
     Dosage: START DATE: 2023
  4. INFLIXIMAB [Concomitant]
     Active Substance: INFLIXIMAB
     Indication: Crohn^s disease
     Dates: start: 202106
  5. ENBREL [Concomitant]
     Active Substance: ETANERCEPT
     Indication: Crohn^s disease
  6. METHOTREXATE SODIUM [Concomitant]
     Active Substance: METHOTREXATE SODIUM
     Indication: Crohn^s disease
     Dates: end: 202310

REACTIONS (9)
  - Cardiac valve abscess [Recovered/Resolved]
  - Intestinal mucosal atrophy [Unknown]
  - Frequent bowel movements [Recovered/Resolved]
  - Proctitis [Unknown]
  - Anal fistula [Recovered/Resolved]
  - Anal fistula [Unknown]
  - Rectal tenesmus [Recovered/Resolved]
  - Cryptitis [Unknown]
  - Spondylitis [Unknown]

NARRATIVE: CASE EVENT DATE: 20220301
